FAERS Safety Report 24594182 (Version 1)
Quarter: 2024Q4

REPORT INFORMATION
  Report Type: Spontaneous
  Country: US (occurrence: US)
  Receive Date: 20241108
  Receipt Date: 20241108
  Transmission Date: 20250115
  Serious: No
  Sender: Haleon PLC
  Company Number: US-HALEON-2207511

PATIENT
  Age: 71 Year
  Sex: Female

DRUGS (1)
  1. VOLTAREN ARTHRITIS PAIN [Suspect]
     Active Substance: DICLOFENAC SODIUM
     Indication: Arthritis
     Dosage: EXPDATE:20270731 , 1 - APPLICATION (AP)
     Dates: start: 20241101, end: 20241106

REACTIONS (1)
  - Skin irritation [Recovered/Resolved]

NARRATIVE: CASE EVENT DATE: 20241101
